FAERS Safety Report 9528240 (Version 2)
Quarter: 2013Q3

REPORT INFORMATION
  Report Type: Spontaneous
  Country: IN (occurrence: None)
  Receive Date: 20130913
  Receipt Date: 20130926
  Transmission Date: 20140515
  Serious: Yes (Life-Threatening, Other)
  Sender: FDA-Public Use
  Company Number: AUR-APL-2013-07586

PATIENT
  Age: 63 Year
  Sex: Male

DRUGS (8)
  1. RAMIPRIL [Suspect]
     Indication: PRODUCT USED FOR UNKNOWN INDICATION
  2. METOPROLOL [Suspect]
     Indication: PRODUCT USED FOR UNKNOWN INDICATION
  3. DICLOFENAC (DICLOFENAC) [Suspect]
     Indication: CHEST PAIN
  4. INSULIN HUMAN [Suspect]
     Indication: HYPERKALAEMIA
     Dosage: 10 UNITS, INTRAVENOUS
     Route: 042
  5. CALCIUM GLUCONATE (CALCIUM GLUCONATE) [Suspect]
     Indication: HYPERKALAEMIA
     Route: 042
  6. ASPIRIN (ACETYLSALICYLIC ACID) [Concomitant]
  7. ATOVASTATIN (ATORVASTATIN) [Concomitant]
  8. DEXTROSE (GLUCOSE), LEVULOSE (FRUCTOSE), PHOSPHORIC ACID [Concomitant]

REACTIONS (6)
  - Off label use [None]
  - Hyperkalaemia [None]
  - Acute myocardial infarction [None]
  - Coronary artery stenosis [None]
  - Arteriospasm coronary [None]
  - Metabolic acidosis [None]
